FAERS Safety Report 10476747 (Version 2)
Quarter: 2014Q3

REPORT INFORMATION
  Report Type: Report from Study
  Country: US (occurrence: US)
  Receive Date: 20140925
  Receipt Date: 20140925
  Transmission Date: 20150326
  Serious: Yes (Other)
  Sender: FDA-Public Use
  Company Number: US-ALEXION PHARMACEUTICALS INC-A201203198

PATIENT
  Sex: Male

DRUGS (1)
  1. SOLIRIS [Suspect]
     Active Substance: ECULIZUMAB
     Indication: PAROXYSMAL NOCTURNAL HAEMOGLOBINURIA
     Dosage: UNK
     Route: 042

REACTIONS (11)
  - Renal failure [Unknown]
  - Pneumonia [Unknown]
  - Fatigue [Unknown]
  - Cardiac failure congestive [Unknown]
  - Erectile dysfunction [Unknown]
  - Dyspnoea [Unknown]
  - Haemoglobinuria [Unknown]
  - Abdominal pain [Unknown]
  - Cardiomyopathy [Unknown]
  - Dyslipidaemia [Unknown]
  - Sinusitis [Unknown]
